FAERS Safety Report 12140248 (Version 2)
Quarter: 2016Q1

REPORT INFORMATION
  Report Type: Spontaneous
  Country: US (occurrence: US)
  Receive Date: 20160303
  Receipt Date: 20160324
  Transmission Date: 20160526
  Serious: Yes (Hospitalization, Other)
  Sender: FDA-Public Use
  Company Number: US-PFIZER INC-2016127568

PATIENT
  Age: 61 Year
  Sex: Male
  Weight: 86.18 kg

DRUGS (2)
  1. GABAPENTIN. [Suspect]
     Active Substance: GABAPENTIN
     Indication: NEURALGIA
     Dosage: 20X3
     Dates: start: 2014
  2. GABAPENTIN. [Interacting]
     Active Substance: GABAPENTIN
     Indication: PAIN

REACTIONS (7)
  - Lethargy [Recovered/Resolved]
  - Femoral neck fracture [Unknown]
  - Peripheral swelling [Recovered/Resolved]
  - Product use issue [Unknown]
  - Somnolence [Recovered/Resolved]
  - Depression [Not Recovered/Not Resolved]
  - Drug interaction [Unknown]

NARRATIVE: CASE EVENT DATE: 2014
